FAERS Safety Report 25115021 (Version 1)
Quarter: 2025Q1

REPORT INFORMATION
  Report Type: Spontaneous
  Country: US (occurrence: None)
  Receive Date: 20250324
  Receipt Date: 20250324
  Transmission Date: 20250408
  Serious: Yes (Other)
  Sender: FDA-CTU
  Company Number: None

PATIENT
  Age: 72 Year
  Sex: Female
  Weight: 47.835 kg

DRUGS (2)
  1. PROLIA [Suspect]
     Active Substance: DENOSUMAB
     Indication: Osteoporosis
     Route: 058
     Dates: start: 20230301, end: 20250319
  2. METRONIDAZOLE [Concomitant]
     Active Substance: METRONIDAZOLE
     Dates: start: 20250311, end: 20250318

REACTIONS (10)
  - Nausea [None]
  - Vomiting [None]
  - Pyrexia [None]
  - Chills [None]
  - Arthralgia [None]
  - Dyspnoea [None]
  - Rash macular [None]
  - Ear pain [None]
  - Night sweats [None]
  - Therapeutic product effect incomplete [None]

NARRATIVE: CASE EVENT DATE: 20250320
